FAERS Safety Report 20946852 (Version 1)
Quarter: 2022Q2

REPORT INFORMATION
  Report Type: Spontaneous
  Country: US (occurrence: US)
  Receive Date: 20220610
  Receipt Date: 20220610
  Transmission Date: 20220720
  Serious: No
  Sender: FDA-Public Use
  Company Number: US-BAXTER-2022BAX011961

PATIENT

DRUGS (2)
  1. MYXREDLIN [Suspect]
     Active Substance: INSULIN HUMAN
     Dosage: UNK, RATE INCREASED UP TO 25 UNITS PER HOUR BY 19:00
     Route: 065
     Dates: start: 20220522
  2. SODIUM CHLORIDE [Suspect]
     Active Substance: SODIUM CHLORIDE
     Indication: Medication dilution
     Dosage: UNK
     Route: 065
     Dates: start: 20220522

REACTIONS (1)
  - Increased insulin requirement [Recovered/Resolved]

NARRATIVE: CASE EVENT DATE: 20220522
